FAERS Safety Report 23747799 (Version 1)
Quarter: 2024Q2

REPORT INFORMATION
  Report Type: Spontaneous
  Country: US (occurrence: None)
  Receive Date: 20240415
  Receipt Date: 20240415
  Transmission Date: 20240716
  Serious: No
  Sender: FDA-Public Use
  Company Number: None

PATIENT
  Age: 20 Year
  Sex: Female
  Weight: 38.25 kg

DRUGS (1)
  1. NAPROXEN [Suspect]
     Active Substance: NAPROXEN

REACTIONS (1)
  - Adverse event [None]

NARRATIVE: CASE EVENT DATE: 20140101
